FAERS Safety Report 9558074 (Version 1)
Quarter: 2013Q3

REPORT INFORMATION
  Report Type: Spontaneous
  Country: US (occurrence: US)
  Receive Date: 20130926
  Receipt Date: 20130926
  Transmission Date: 20140515
  Serious: No
  Sender: FDA-Public Use
  Company Number: US-BIOGENIDEC-2013BI040064

PATIENT
  Age: 58 Year
  Sex: Female

DRUGS (3)
  1. TECFIDERA [Suspect]
     Indication: MULTIPLE SCLEROSIS
     Route: 048
     Dates: start: 20130426
  2. EFFEXOR [Concomitant]
     Indication: DEPRESSION
  3. NEURONTIN [Concomitant]
     Indication: PAIN

REACTIONS (3)
  - Flushing [Unknown]
  - Abdominal discomfort [Unknown]
  - Feeling abnormal [Unknown]
